FAERS Safety Report 8053766-6 (Version None)
Quarter: 2012Q1

REPORT INFORMATION
  Report Type: 
  Country: None (occurrence: None)
  Receive Date: 20120110
  Receipt Date: 20111227
  Transmission Date: 20120608
  Serious: Yes (Hospitalization)
  Sender: FDA-Public Use
  Company Number: IT-1189607

PATIENT
  Age: 35 Year

DRUGS (8)
  1. CEFTRIAXONE [Concomitant]
  2. TROPICAMIDE [Concomitant]
  3. CILOXAN [Concomitant]
  4. VANCOMYCIN [Concomitant]
  5. TOBRAMYCIN [Concomitant]
  6. CIPROFLOXACIN [Suspect]
     Indication: KERATITIS
     Dosage: (3 TIMES DAY OPHTHALMIC) ; (6 TIMES A DAY OPHTHALMIC)
     Route: 047
  7. CIPROFLOXACIN [Suspect]
     Indication: KERATITIS
     Dosage: (3 TIMES DAY OPHTHALMIC) ; (6 TIMES A DAY OPHTHALMIC)
     Route: 047
  8. FLUCONAZOLE [Concomitant]

REACTIONS (9)
  - KERATITIS [None]
  - VISUAL ACUITY REDUCED [None]
  - CORNEAL NEOVASCULARISATION [None]
  - CORNEAL EPITHELIUM DEFECT [None]
  - EYE INFLAMMATION [None]
  - HYPOAESTHESIA EYE [None]
  - CORNEAL OPACITY [None]
  - CORNEAL INFILTRATES [None]
  - ANTERIOR CHAMBER INFLAMMATION [None]
